FAERS Safety Report 10411696 (Version 2)
Quarter: 2014Q4

REPORT INFORMATION
  Report Type: Spontaneous
  Country: US (occurrence: US)
  Receive Date: 20140827
  Receipt Date: 20141029
  Transmission Date: 20150528
  Serious: No
  Sender: FDA-Public Use
  Company Number: US-SHIRE-US201405283

PATIENT
  Sex: Male
  Weight: 58.96 kg

DRUGS (2)
  1. VYVANSE [Suspect]
     Active Substance: LISDEXAMFETAMINE DIMESYLATE
     Indication: ATTENTION DEFICIT/HYPERACTIVITY DISORDER
     Dosage: 20 MG, 1X/DAY:QD
     Route: 048
     Dates: start: 2012
  2. VYVANSE [Suspect]
     Active Substance: LISDEXAMFETAMINE DIMESYLATE
     Indication: ANXIETY

REACTIONS (8)
  - Mood altered [Not Recovered/Not Resolved]
  - Hostility [Not Recovered/Not Resolved]
  - Drug effect decreased [Not Recovered/Not Resolved]
  - Performance status decreased [Not Recovered/Not Resolved]
  - Impatience [Not Recovered/Not Resolved]
  - Drug dose omission [Not Recovered/Not Resolved]
  - Personality change [Not Recovered/Not Resolved]
  - Negativism [Not Recovered/Not Resolved]

NARRATIVE: CASE EVENT DATE: 2012
